FAERS Safety Report 16750842 (Version 1)
Quarter: 2019Q3

REPORT INFORMATION
  Report Type: Spontaneous
  Country: SA (occurrence: SA)
  Receive Date: 20190828
  Receipt Date: 20190828
  Transmission Date: 20191005
  Serious: Yes (Other)
  Sender: FDA-Public Use
  Company Number: SA-ONY, INC.-2073776

PATIENT
  Age: 1 Day
  Sex: Female
  Weight: 1.2 kg

DRUGS (1)
  1. INFASURF [Suspect]
     Active Substance: CALFACTANT
     Route: 039
     Dates: start: 20190409, end: 20190409

REACTIONS (2)
  - Neonatal hypoxia [Recovered/Resolved]
  - Endotracheal intubation complication [Recovered/Resolved]

NARRATIVE: CASE EVENT DATE: 20190409
